FAERS Safety Report 20681611 (Version 1)
Quarter: 2022Q2

REPORT INFORMATION
  Report Type: Spontaneous
  Country: US (occurrence: US)
  Receive Date: 20220406
  Receipt Date: 20220406
  Transmission Date: 20220721
  Serious: Yes (Other)
  Sender: FDA-Public Use
  Company Number: US-BRISTOL-MYERS SQUIBB COMPANY-2022-013614

PATIENT
  Age: 86 Year
  Sex: Female
  Weight: 53.523 kg

DRUGS (11)
  1. REVLIMID [Suspect]
     Active Substance: LENALIDOMIDE
     Indication: Plasma cell myeloma
     Dosage: 21 DAYS ON 7 DAYS OFF?LOT START DATE: 01-JUL-2011
     Route: 048
     Dates: start: 20110709, end: 20120329
  2. POMALIDOMIDE [Suspect]
     Active Substance: POMALIDOMIDE
     Indication: Plasma cell myeloma
     Dosage: DAILY
     Route: 048
     Dates: start: 20150822, end: 20150912
  3. DECADRON [Suspect]
     Active Substance: DEXAMETHASONE
     Indication: Plasma cell myeloma
     Dosage: DAY 2 AND 3 AFTER CHEMOTHERAPY?ONGOING
     Route: 065
     Dates: start: 20160225
  4. DECADRON [Suspect]
     Active Substance: DEXAMETHASONE
     Route: 048
     Dates: start: 20110701, end: 20220329
  5. DECADRON [Suspect]
     Active Substance: DEXAMETHASONE
     Dosage: LOW DOSE?DAY 1, 2, 8, 9, 15, 16 EVERY 28 DAYS
     Route: 048
     Dates: start: 20150924, end: 20151121
  6. DECADRON [Suspect]
     Active Substance: DEXAMETHASONE
     Dosage: DAY 1, 8, 18, EVERY 28 DAYS
     Route: 048
     Dates: start: 20160107, end: 20160115
  7. DECADRON [Suspect]
     Active Substance: DEXAMETHASONE
     Dosage: DAYS OF DARALTUMUMAB
     Route: 042
     Dates: start: 20160212, end: 20160219
  8. DECADRON [Suspect]
     Active Substance: DEXAMETHASONE
     Dosage: DAYS OF DARATUMUMAB
     Route: 042
     Dates: start: 20160225
  9. CARFILZOMIB [Suspect]
     Active Substance: CARFILZOMIB
     Indication: Plasma cell myeloma
  10. VELCADE [Suspect]
     Active Substance: BORTEZOMIB
     Indication: Plasma cell myeloma
     Dosage: 1 X WEEKLY, NO REST PERIOD: DAY 1 Q 7D
     Route: 058
     Dates: start: 20110701, end: 20120329
  11. DARZALEX [Suspect]
     Active Substance: DARATUMUMAB
     Indication: Plasma cell myeloma
     Route: 042
     Dates: start: 20160407

REACTIONS (3)
  - Toxicity to various agents [Unknown]
  - Skin disorder [Unknown]
  - Squamous cell carcinoma [Unknown]

NARRATIVE: CASE EVENT DATE: 20220110
